FAERS Safety Report 8833685 (Version 2)
Quarter: 2012Q4

REPORT INFORMATION
  Report Type: 
  Country: US (occurrence: US)
  Receive Date: 20121010
  Receipt Date: 20121023
  Transmission Date: 20130627
  Serious: No
  Sender: FDA-Public Use
  Company Number: US-VERTEX PHARMACEUTICAL INC.-2012-021731

PATIENT
  Age: 56 None
  Sex: Male
  Weight: 109 kg

DRUGS (10)
  1. VX-950 [Suspect]
     Indication: HEPATITIS C
     Dosage: 750 mg, tid
     Route: 048
     Dates: start: 20120914
  2. PEGASYS [Suspect]
     Indication: HEPATITIS C
     Dosage: 150 ?g, weekly
     Route: 058
     Dates: start: 20120914
  3. PEGASYS [Suspect]
     Dosage: 80 ?g, UNK
  4. RIBAPAK PAK [Concomitant]
     Indication: HEPATITIS C
     Dosage: 600 mg, bid
     Route: 048
     Dates: start: 20120914
  5. RIBAPAK PAK [Concomitant]
     Dosage: 1000 UNK, qd
  6. RIBAPAK PAK [Concomitant]
     Dosage: 800 UNK, qd
  7. ZOFRAN                             /00955301/ [Concomitant]
     Dosage: 4 mg, UNK
  8. TYLENOL /00020001/ [Concomitant]
     Dosage: 325 mg, UNK
  9. MULTIVITAMIN                       /00097801/ [Concomitant]
  10. TESTOSTERONE [Concomitant]
     Dosage: 1000 mg, UNK

REACTIONS (10)
  - Influenza like illness [Unknown]
  - Headache [Not Recovered/Not Resolved]
  - Pyrexia [Not Recovered/Not Resolved]
  - Chills [Not Recovered/Not Resolved]
  - Nasopharyngitis [Not Recovered/Not Resolved]
  - Pain [Not Recovered/Not Resolved]
  - Fatigue [Not Recovered/Not Resolved]
  - Rash pruritic [Not Recovered/Not Resolved]
  - Vomiting [Unknown]
  - Nausea [Unknown]
